FAERS Safety Report 22103598 (Version 2)
Quarter: 2023Q2

REPORT INFORMATION
  Report Type: Spontaneous
  Country: JP (occurrence: JP)
  Receive Date: 20230316
  Receipt Date: 20230413
  Transmission Date: 20230722
  Serious: Yes (Death, Life-Threatening, Hospitalization, Other)
  Sender: FDA-Public Use
  Company Number: JP-PFIZER INC-PV202300048435

PATIENT
  Age: 68 Year
  Sex: Male
  Weight: 53.8 kg

DRUGS (5)
  1. PACLITAXEL [Suspect]
     Active Substance: PACLITAXEL
     Indication: Gastric cancer recurrent
     Dosage: 100 MG, ONCE, EVERY OTHER WEEK
     Route: 042
     Dates: start: 20221024, end: 20221128
  2. CYRAMZA [Suspect]
     Active Substance: RAMUCIRUMAB
     Indication: Gastric cancer recurrent
     Dosage: 375 MG, 3 TIMES EVERY OTHER WEEK
     Route: 042
     Dates: start: 20221024, end: 20221128
  3. URSODIOL [Concomitant]
     Active Substance: URSODIOL
     Dosage: UNK
     Dates: start: 20211109, end: 202211
  4. DL-METHIONINE/GLYCINE/GLYCYRRHIZIC ACID [Concomitant]
     Dosage: UNK
     Dates: start: 20210927, end: 202211
  5. EFINACONAZOLE [Concomitant]
     Active Substance: EFINACONAZOLE

REACTIONS (9)
  - Hepatic artery aneurysm [Fatal]
  - Aneurysm ruptured [Fatal]
  - Gastrointestinal injury [Fatal]
  - Small intestinal haemorrhage [Fatal]
  - Shock haemorrhagic [Fatal]
  - Blood pressure decreased [Fatal]
  - Cardiac arrest [Fatal]
  - Neoplasm progression [Fatal]
  - Haematemesis [Unknown]

NARRATIVE: CASE EVENT DATE: 20221206
